FAERS Safety Report 7338290-8 (Version None)
Quarter: 2011Q1

REPORT INFORMATION
  Report Type: 
  Country: None (occurrence: None)
  Receive Date: 20110308
  Receipt Date: 20110228
  Transmission Date: 20110831
  Serious: Yes (Hospitalization)
  Sender: FDA-Public Use
  Company Number: US-ASTRAZENECA-2011SE02095

PATIENT
  Age: 989 Month
  Sex: Female
  Weight: 43.5 kg

DRUGS (16)
  1. SYMBICORT [Suspect]
     Indication: ASTHMA
     Dosage: 160/4.5 2 PUFFS BID
     Route: 055
     Dates: start: 20000101
  2. PENTOXIFYLLI [Concomitant]
     Dosage: UNKNOWN DOSE TWO TIMES A DAY
  3. SPIRIVA [Concomitant]
  4. MUCINEX [Concomitant]
  5. FOLIC ACID [Concomitant]
  6. LORAZEPAM [Concomitant]
  7. ASPIRIN [Concomitant]
  8. OXYCODONE [Concomitant]
  9. ZANTAC [Concomitant]
  10. SYMBICORT [Suspect]
     Indication: CHRONIC OBSTRUCTIVE PULMONARY DISEASE
     Dosage: 160/4.5 2 PUFFS BID
     Route: 055
     Dates: start: 20000101
  11. IMDUR [Concomitant]
  12. PROVENTIL [Concomitant]
  13. VITAMIN D [Concomitant]
  14. GENERIC PREVACOL [Concomitant]
  15. ALBUTEROL IN NEBULIZER [Concomitant]
  16. COZAAR [Concomitant]

REACTIONS (3)
  - DRUG INEFFECTIVE [None]
  - CHRONIC OBSTRUCTIVE PULMONARY DISEASE [None]
  - LEFT VENTRICULAR DYSFUNCTION [None]
